FAERS Safety Report 6855459-7 (Version None)
Quarter: 2010Q3

REPORT INFORMATION
  Report Type: 
  Country: None (occurrence: None)
  Receive Date: 20100719
  Receipt Date: 20100709
  Transmission Date: 20110219
  Serious: Yes (Other)
  Sender: FDA-Public Use
  Company Number: US-RANBAXY-2010US-35641

PATIENT

DRUGS (3)
  1. FLECAINIDE ACETATE [Suspect]
     Indication: ARRHYTHMIA
     Dosage: 50 MG, QD
     Route: 048
     Dates: start: 20100701
  2. SIMVASTATIN [Suspect]
     Indication: PRODUCT USED FOR UNKNOWN INDICATION
     Dosage: UNK, QHS
     Route: 065
  3. ASPIRIN [Suspect]
     Indication: PRODUCT USED FOR UNKNOWN INDICATION
     Dosage: UNK, BID
     Route: 065

REACTIONS (2)
  - FEELING HOT [None]
  - TACHYCARDIA [None]
